FAERS Safety Report 5580512-8 (Version None)
Quarter: 2008Q1

REPORT INFORMATION
  Report Type: 
  Country: None (occurrence: None)
  Receive Date: 20080103
  Receipt Date: 20071228
  Transmission Date: 20080703
  Serious: Yes (Disabling, Other)
  Sender: FDA-Public Use
  Company Number: US-ELI_LILLY_AND_COMPANY-US200712005258

PATIENT
  Sex: Female

DRUGS (11)
  1. HUMULIN R [Suspect]
  2. DILACOR XR [Concomitant]
  3. ISOSORBIDE DINITRATE [Concomitant]
  4. DIGOXIN [Concomitant]
  5. LISINOPRIL [Concomitant]
  6. ACTOS [Concomitant]
  7. LOVASTATIN [Concomitant]
  8. OXAPROZIN [Concomitant]
  9. FEXOFENADINE [Concomitant]
  10. OMEPRAZOLE [Concomitant]
  11. DICYCLOMINE [Concomitant]

REACTIONS (4)
  - ARTHRITIS [None]
  - CARDIAC DISORDER [None]
  - CEREBROVASCULAR ACCIDENT [None]
  - HYPERTENSION [None]
